FAERS Safety Report 5776575-7 (Version None)
Quarter: 2008Q2

REPORT INFORMATION
  Report Type: 
  Country: None (occurrence: None)
  Receive Date: 20080616
  Receipt Date: 20080604
  Transmission Date: 20081010
  Serious: No
  Sender: FDA-Public Use
  Company Number: ADE2008-0214

PATIENT
  Age: 33 Year
  Sex: Female

DRUGS (4)
  1. METFORMIN HYDROCHLORIDE [Suspect]
     Indication: DIABETES MELLITUS
     Dosage: 1000MG,BID,PO
     Route: 048
  2. ACTOS [Suspect]
     Dosage: 45MG,QD
  3. INSULIN [Concomitant]
  4. PREDNISOLONE [Suspect]

REACTIONS (3)
  - DIABETES MELLITUS INADEQUATE CONTROL [None]
  - MACULAR OEDEMA [None]
  - UVEITIS [None]
